FAERS Safety Report 6670024-2 (Version None)
Quarter: 2010Q2

REPORT INFORMATION
  Report Type: 
  Country: None (occurrence: None)
  Receive Date: 20100406
  Receipt Date: 20100119
  Transmission Date: 20101027
  Serious: No
  Sender: FDA-Public Use
  Company Number: US-ALLERGAN-1000482US

PATIENT
  Sex: Female

DRUGS (12)
  1. LATISSE [Suspect]
     Indication: GROWTH OF EYELASHES
     Dosage: UNK
  2. PLAQUENIL [Concomitant]
  3. SYNTHROID [Concomitant]
     Indication: THYROID DISORDER
  4. LEXAPRO [Concomitant]
     Indication: DEPRESSION
  5. LORAZEPAM [Concomitant]
     Indication: ANXIETY
  6. FINASTERIDE [Concomitant]
  7. FISH OIL [Concomitant]
  8. DAILY VITAMINS [Concomitant]
  9. ASPIRIN [Concomitant]
  10. CORTISONE [Concomitant]
  11. ROGAINE [Concomitant]
     Route: 061
  12. TEARS [Concomitant]

REACTIONS (3)
  - DRUG ADMINISTRATION ERROR [None]
  - DRUG INEFFECTIVE [None]
  - MADAROSIS [None]
